FAERS Safety Report 10167819 (Version 2)
Quarter: 2014Q2

REPORT INFORMATION
  Report Type: Spontaneous
  Country: DE (occurrence: DE)
  Receive Date: 20140512
  Receipt Date: 20140514
  Transmission Date: 20141212
  Serious: Yes (Life-Threatening)
  Sender: FDA-Public Use
  Company Number: DE-TAKEDA-2014TEU003641

PATIENT
  Sex: Female

DRUGS (1)
  1. TACHOSIL [Suspect]
     Indication: DURAL TEAR

REACTIONS (5)
  - Adverse event [Unknown]
  - Paraesthesia [Unknown]
  - Restlessness [Unknown]
  - Nausea [Unknown]
  - Hypotension [Unknown]
